FAERS Safety Report 11350037 (Version 2)
Quarter: 2015Q4

REPORT INFORMATION
  Report Type: Spontaneous
  Country: FR (occurrence: FR)
  Receive Date: 20150807
  Receipt Date: 20151118
  Transmission Date: 20160304
  Serious: Yes (Other)
  Sender: FDA-Public Use
  Company Number: FR-ASTRAZENECA-2015SE75327

PATIENT
  Age: 932 Month
  Sex: Female

DRUGS (10)
  1. PREVISCAN [Suspect]
     Active Substance: FLUINDIONE
     Route: 048
     Dates: start: 201503
  2. LANZOR [Concomitant]
     Active Substance: LANSOPRAZOLE
  3. ARAVA [Concomitant]
     Active Substance: LEFLUNOMIDE
     Indication: RHEUMATIC DISORDER
  4. UVEDOSE [Concomitant]
     Active Substance: CHOLECALCIFEROL
     Indication: RHEUMATIC DISORDER
  5. VALSARTAN AND HYDROCHLOROTHIAZIDE [Concomitant]
     Active Substance: HYDROCHLOROTHIAZIDE\VALSARTAN
  6. CORTANCYL [Concomitant]
     Active Substance: PREDNISONE
     Indication: RHEUMATIC DISORDER
  7. CALCIDOSE [Concomitant]
     Active Substance: CALCIUM CARBONATE
     Indication: RHEUMATIC DISORDER
  8. MOPRAL [Suspect]
     Active Substance: OMEPRAZOLE SODIUM
     Route: 048
     Dates: end: 201507
  9. AMLOR [Suspect]
     Active Substance: AMLODIPINE BESYLATE
     Dosage: 5 MG, UNKNOWN (NON AZ PRODUCT)
     Route: 048
     Dates: start: 201503, end: 20150630
  10. FLECTOR [Suspect]
     Active Substance: DICLOFENAC EPOLAMINE
     Route: 003
     Dates: end: 201507

REACTIONS (4)
  - Gastritis [Recovered/Resolved]
  - Abdominal pain [Unknown]
  - Colitis microscopic [Recovered/Resolved]
  - Diarrhoea [Unknown]

NARRATIVE: CASE EVENT DATE: 201505
